FAERS Safety Report 9640871 (Version 1)
Quarter: 2013Q4

REPORT INFORMATION
  Report Type: Report from Study
  Country: US (occurrence: US)
  Receive Date: 20131023
  Receipt Date: 20131023
  Transmission Date: 20140711
  Serious: No
  Sender: FDA-Public Use
  Company Number: US-ABBVIE-13P-163-1043027-00

PATIENT
  Age: 28 Year
  Sex: Female
  Weight: 49.49 kg

DRUGS (6)
  1. LUPRON DEPOT [Suspect]
     Indication: ENDOMETRIOSIS
     Route: 030
     Dates: start: 20130114
  2. PREDNISONE [Concomitant]
     Indication: PRODUCT USED FOR UNKNOWN INDICATION
  3. LYRICA [Concomitant]
     Indication: FIBROMYALGIA
     Dosage: 50MG ONCE IN THE MORNING AND 100MG AT NIGHT
  4. NORTRIPTYLINE [Concomitant]
     Indication: FIBROMYALGIA
     Dosage: AT NIGHT
  5. NORCO [Concomitant]
     Indication: PRODUCT USED FOR UNKNOWN INDICATION
     Dosage: 10/325MG
  6. SOMA [Concomitant]
     Indication: HYPOTONIA
     Dosage: AT NIGHT

REACTIONS (2)
  - Headache [Not Recovered/Not Resolved]
  - Weight increased [Not Recovered/Not Resolved]
